FAERS Safety Report 5051422-X (Version None)
Quarter: 2006Q3

REPORT INFORMATION
  Report Type: 
  Country: None (occurrence: None)
  Receive Date: 20060714
  Receipt Date: 20060707
  Transmission Date: 20061208
  Serious: Yes (Other)
  Sender: FDA-Public Use
  Company Number: US-ROCHE-454873

PATIENT
  Age: 64 Year
  Sex: Female
  Weight: 113.4 kg

DRUGS (1)
  1. XENICAL [Suspect]
     Indication: OBESITY
     Dosage: OTHER INDICATION WEIGHT LOSS
     Route: 048
     Dates: start: 20010615, end: 20010615

REACTIONS (2)
  - NEOPLASM MALIGNANT [None]
  - SALIVARY GLAND CANCER [None]
